FAERS Safety Report 5322747-5 (Version None)
Quarter: 2007Q2

REPORT INFORMATION
  Report Type: 
  Country: None (occurrence: None)
  Receive Date: 20070511
  Receipt Date: 20070427
  Transmission Date: 20071010
  Serious: Yes (Life-Threatening, Hospitalization, Other)
  Sender: FDA-Public Use
  Company Number: JP-SHR-JP-2005-012299

PATIENT
  Age: 52 Year
  Sex: Male
  Weight: 52 kg

DRUGS (11)
  1. BETASERON [Suspect]
     Indication: RELAPSING-REMITTING MULTIPLE SCLEROSIS
     Dosage: 8 MIU, EVERY 2D
     Route: 058
     Dates: start: 20001222, end: 20050623
  2. ALOSENN [Concomitant]
     Dosage: .5 G, 1X/DAY
     Route: 048
     Dates: start: 20050618, end: 20050624
  3. GABALON [Concomitant]
     Dosage: 15 MG, 1X/DAY
     Route: 048
     Dates: start: 20020101, end: 20050624
  4. CONIEL [Concomitant]
     Indication: HYPERTENSION
     Dosage: 8 MG, 1X/DAY
     Route: 048
     Dates: start: 20021127, end: 20050624
  5. SYMMETREL [Concomitant]
     Dosage: 100 MG, 1X/DAY
     Route: 048
     Dates: start: 20050603, end: 20050624
  6. PREDNISOLONE [Concomitant]
     Indication: COLLAGEN DISORDER
     Dosage: 30 MG, 1X/DAY
     Route: 048
     Dates: start: 20050601
  7. MUCOSTA [Concomitant]
     Indication: GASTRIC ULCER
     Dosage: 300 MG, 1X/DAY
     Route: 048
     Dates: start: 20020101
  8. RENIVACE [Concomitant]
     Indication: HYPERTENSION
     Dosage: 5 MG, 1X/DAY
     Route: 048
     Dates: start: 20040107, end: 20050624
  9. NIVADIL [Concomitant]
     Indication: ESSENTIAL HYPERTENSION
     Dosage: 8 MG, 1X/DAY
     Route: 048
     Dates: start: 20011222
  10. PURSENNID                               /SCH/ [Concomitant]
     Indication: CONSTIPATION
     Dosage: 24 MG, 1X/DAY
     Route: 048
  11. CEFAMEZIN ^FUJISAWA^ [Concomitant]
     Dosage: 2 G, 1X/DAY
     Route: 042

REACTIONS (13)
  - ANAEMIA [None]
  - CYTOMEGALOVIRUS ANTIGEN POSITIVE [None]
  - DECREASED APPETITE [None]
  - DEHYDRATION [None]
  - DNA ANTIBODY POSITIVE [None]
  - HISTIOCYTOSIS HAEMATOPHAGIC [None]
  - INJECTION SITE CELLULITIS [None]
  - PLATELET COUNT DECREASED [None]
  - PYREXIA [None]
  - SERUM FERRITIN INCREASED [None]
  - SHOCK [None]
  - SYSTEMIC LUPUS ERYTHEMATOSUS [None]
  - WHITE BLOOD CELL COUNT DECREASED [None]
